FAERS Safety Report 25714369 (Version 1)
Quarter: 2025Q3

REPORT INFORMATION
  Report Type: Spontaneous
  Country: US (occurrence: US)
  Receive Date: 20250822
  Receipt Date: 20250822
  Transmission Date: 20251021
  Serious: No
  Sender: STRIDES
  Company Number: US-STRIDES ARCOLAB LIMITED-2024SP013144

PATIENT
  Age: 70 Year
  Sex: Female

DRUGS (5)
  1. AMLODIPINE [Suspect]
     Active Substance: AMLODIPINE BESYLATE
     Indication: Hypertension
     Route: 065
  2. AMLODIPINE [Suspect]
     Active Substance: AMLODIPINE BESYLATE
     Route: 065
  3. HYDROCHLOROTHIAZIDE [Suspect]
     Active Substance: HYDROCHLOROTHIAZIDE
     Indication: Hypertension
     Route: 065
  4. HYDROCHLOROTHIAZIDE [Suspect]
     Active Substance: HYDROCHLOROTHIAZIDE
     Route: 065
  5. SITAGLIPTIN [Concomitant]
     Active Substance: SITAGLIPTIN
     Indication: Type 2 diabetes mellitus
     Route: 065

REACTIONS (1)
  - Drug eruption [Recovered/Resolved]
